FAERS Safety Report 6170127-5 (Version None)
Quarter: 2009Q2

REPORT INFORMATION
  Report Type: 
  Country: None (occurrence: None)
  Receive Date: 20090428
  Receipt Date: 20090421
  Transmission Date: 20091009
  Serious: Yes (Other)
  Sender: FDA-Public Use
  Company Number: B0572020A

PATIENT
  Sex: Female

DRUGS (1)
  1. KIVEXA [Suspect]
     Indication: HIV INFECTION
     Route: 048

REACTIONS (3)
  - LARYNGEAL OEDEMA [None]
  - PYREXIA [None]
  - RASH [None]
